FAERS Safety Report 5885684-3 (Version None)
Quarter: 2008Q3

REPORT INFORMATION
  Report Type: 
  Country: None (occurrence: None)
  Receive Date: 20080912
  Receipt Date: 20080903
  Transmission Date: 20090109
  Serious: Yes (Hospitalization, Disabling)
  Sender: FDA-Public Use
  Company Number: 2008-02884

PATIENT
  Age: 53 Year
  Sex: Female
  Weight: 52 kg

DRUGS (6)
  1. VELCADE [Suspect]
     Indication: MULTIPLE MYELOMA
     Dosage: 1.96 MG, UNK, INTRAVENOUS,
     Route: 042
     Dates: start: 20080729, end: 20080801
  2. VELCADE [Suspect]
     Indication: MULTIPLE MYELOMA
     Dosage: 1.96 MG, UNK, INTRAVENOUS,
     Route: 042
     Dates: start: 20080729, end: 20080801
  3. KYTRIL [Concomitant]
  4. DIFLUCAN [Concomitant]
  5. ALLOPURINOL [Concomitant]
  6. LEVOFLOXACIN [Concomitant]

REACTIONS (4)
  - CONDITION AGGRAVATED [None]
  - DIALYSIS [None]
  - PNEUMONIA BACTERIAL [None]
  - RENAL FAILURE ACUTE [None]
